FAERS Safety Report 4319592-6 (Version None)
Quarter: 2004Q1

REPORT INFORMATION
  Report Type: 
  Country: None (occurrence: None)
  Receive Date: 20040318
  Receipt Date: 20040318
  Transmission Date: 20041129
  Serious: No
  Sender: FDA-Public Use
  Company Number: None

PATIENT
  Sex: Female

DRUGS (1)
  1. VANCOMYCIN HYDROCHLORIDE [Suspect]
     Indication: STAPHYLOCOCCAL INFECTION
     Dosage: 1GM Q12H INTRAVENOUS
     Route: 042
     Dates: start: 20031219, end: 20040108

REACTIONS (2)
  - CONDITION AGGRAVATED [None]
  - DEAFNESS [None]
